FAERS Safety Report 11926777 (Version 4)
Quarter: 2017Q2

REPORT INFORMATION
  Report Type: Report from Study
  Country: US (occurrence: US)
  Receive Date: 20160119
  Receipt Date: 20170414
  Transmission Date: 20170829
  Serious: Yes (Hospitalization)
  Sender: FDA-Public Use
  Company Number: US-VERTEX PHARMACEUTICALS-2016-000210

PATIENT
  Age: 27 Year
  Sex: Male

DRUGS (14)
  1. FORMOTEROL [Concomitant]
     Active Substance: FORMOTEROL
  2. CALTRATE [Concomitant]
     Active Substance: CALCIUM CARBONATE
  3. ZOLOFT [Concomitant]
     Active Substance: SERTRALINE HYDROCHLORIDE
  4. ORKAMBI [Suspect]
     Active Substance: IVACAFTOR\LUMACAFTOR
     Indication: CYSTIC FIBROSIS
     Dosage: 2 DF (200/125 MG EACH), BID
     Route: 048
     Dates: start: 20151109, end: 20151221
  5. OMEPRAZOLE. [Concomitant]
     Active Substance: OMEPRAZOLE
  6. CREON 24000 [Concomitant]
  7. MIRALAX [Concomitant]
     Active Substance: POLYETHYLENE GLYCOL 3350
  8. SYMBICORT [Concomitant]
     Active Substance: BUDESONIDE\FORMOTEROL FUMARATE DIHYDRATE
  9. DORNASE ALFA [Concomitant]
     Active Substance: DORNASE ALFA
  10. BUDESONIDE. [Concomitant]
     Active Substance: BUDESONIDE
  11. AQUADEKS [Concomitant]
     Active Substance: MINERALS\VITAMINS
  12. PULMOZYME [Concomitant]
     Active Substance: DORNASE ALFA
  13. HYPERTONIC SALINE SOLUTION [Concomitant]
     Active Substance: SODIUM CHLORIDE
  14. NASONEX [Concomitant]
     Active Substance: MOMETASONE FUROATE

REACTIONS (5)
  - Diarrhoea [Unknown]
  - Blood alkaline phosphatase increased [Recovered/Resolved]
  - Abdominal pain [Unknown]
  - Vomiting [Unknown]
  - Nausea [Unknown]

NARRATIVE: CASE EVENT DATE: 201512
